FAERS Safety Report 9551916 (Version 1)
Quarter: 2013Q3

REPORT INFORMATION
  Report Type: Spontaneous
  Country: US (occurrence: US)
  Receive Date: 20130925
  Receipt Date: 20130925
  Transmission Date: 20140515
  Serious: No
  Sender: FDA-Public Use
  Company Number: US-B.I. PHARMACEUTICALS,INC./RIDGEFIELD-2013-BI-29297BP

PATIENT
  Sex: Female
  Weight: 77 kg

DRUGS (4)
  1. SPIRIVA [Suspect]
     Indication: ASTHMA
     Dosage: 18 MCG
     Route: 055
     Dates: start: 2004
  2. COMBIVENT MDI [Concomitant]
     Indication: ASTHMA
     Dosage: STRENGTH: 18MCG/103MCG; DAILY DOSE: 180MCG/824MCG
     Route: 055
  3. PROVENTIL [Concomitant]
     Indication: ASTHMA
     Dosage: 4 PUF
     Route: 055
  4. ADVAIR [Concomitant]
     Indication: ASTHMA
     Dosage: STRENGTH: 500/50; DAILY DOSE: 1500/150
     Route: 055

REACTIONS (2)
  - Dyspnoea [Not Recovered/Not Resolved]
  - Off label use [Not Recovered/Not Resolved]
